FAERS Safety Report 25064003 (Version 1)
Quarter: 2025Q1

REPORT INFORMATION
  Report Type: Report from Study
  Country: IT (occurrence: IT)
  Receive Date: 20250311
  Receipt Date: 20250311
  Transmission Date: 20250409
  Serious: Yes (Other)
  Sender: AUROBINDO
  Company Number: IT-AUROBINDO-AUR-APL-2025-011774

PATIENT
  Age: 60 Year
  Sex: Female

DRUGS (1)
  1. AMOXICILLIN\CLAVULANIC ACID [Suspect]
     Active Substance: AMOXICILLIN\CLAVULANIC ACID
     Indication: Pharyngitis
     Route: 065

REACTIONS (6)
  - Kounis syndrome [Unknown]
  - Dyspnoea [Unknown]
  - Vomiting [Unknown]
  - Bronchospasm [Unknown]
  - Loss of consciousness [Unknown]
  - Hypotension [Unknown]
